FAERS Safety Report 21592893 (Version 1)
Quarter: 2022Q4

REPORT INFORMATION
  Report Type: Spontaneous
  Country: None (occurrence: FR)
  Receive Date: 20221114
  Receipt Date: 20221114
  Transmission Date: 20230112
  Serious: Yes (Other)
  Sender: FDA-Public Use
  Company Number: FR-AFSSAPS-AVCN20220895

PATIENT
  Age: 31 Year
  Sex: Male

DRUGS (3)
  1. NITROUS OXIDE [Suspect]
     Active Substance: NITROUS OXIDE
     Indication: Product used for unknown indication
     Route: 055
  2. MIDAZOLAM [Suspect]
     Active Substance: MIDAZOLAM
     Route: 042
  3. KETAMIN [Suspect]
     Active Substance: KETAMINE
     Route: 042

REACTIONS (2)
  - Abnormal behaviour [Not Recovered/Not Resolved]
  - Agitation [Recovered/Resolved]

NARRATIVE: CASE EVENT DATE: 20221019
